FAERS Safety Report 6748243-6 (Version None)
Quarter: 2010Q2

REPORT INFORMATION
  Report Type: 
  Country: None (occurrence: None)
  Receive Date: 20100601
  Receipt Date: 20100520
  Transmission Date: 20101027
  Serious: No
  Sender: FDA-Public Use
  Company Number: US-BIOGENIDEC-2010BI016899

PATIENT
  Sex: Male

DRUGS (1)
  1. TYSABRI [Suspect]
     Indication: MULTIPLE SCLEROSIS
     Route: 042
     Dates: start: 20090506

REACTIONS (5)
  - BIPOLAR DISORDER [None]
  - BLOOD CHOLESTEROL ABNORMAL [None]
  - CHRONIC SINUSITIS [None]
  - TOBACCO ABUSE [None]
  - URINARY TRACT INFECTION [None]
